FAERS Safety Report 22157797 (Version 2)
Quarter: 2023Q2

REPORT INFORMATION
  Report Type: Spontaneous
  Country: JP (occurrence: JP)
  Receive Date: 20230330
  Receipt Date: 20230407
  Transmission Date: 20230722
  Serious: Yes (Hospitalization, Other)
  Sender: FDA-Public Use
  Company Number: JP-LUNDBECK-DKLU3059970

PATIENT
  Sex: Male

DRUGS (3)
  1. ESCITALOPRAM OXALATE [Suspect]
     Active Substance: ESCITALOPRAM OXALATE
     Indication: Product used for unknown indication
     Route: 048
  2. RISPERIDONE [Suspect]
     Active Substance: RISPERIDONE
     Indication: Product used for unknown indication
     Dosage: UNK
     Route: 048
  3. PALIPERIDONE PALMITATE [Suspect]
     Active Substance: PALIPERIDONE PALMITATE
     Indication: Product used for unknown indication
     Dosage: UNK

REACTIONS (4)
  - Neuroleptic malignant syndrome [Recovering/Resolving]
  - Acute kidney injury [Recovering/Resolving]
  - Blood creatine phosphokinase increased [Recovering/Resolving]
  - Rhabdomyolysis [Recovering/Resolving]
